FAERS Safety Report 21179856 (Version 23)
Quarter: 2023Q2

REPORT INFORMATION
  Report Type: Report from Study
  Country: KR (occurrence: None)
  Receive Date: 20220805
  Receipt Date: 20230403
  Transmission Date: 20230721
  Serious: Yes (Life-Threatening, Hospitalization)
  Sender: FDA-Public Use
  Company Number: KR-Eisai Medical Research-EC-2022-120492

PATIENT
  Age: 44 Year
  Sex: Female
  Weight: 72 kg

DRUGS (14)
  1. LENVATINIB [Suspect]
     Active Substance: LENVATINIB
     Indication: Bile duct adenocarcinoma
     Route: 048
     Dates: start: 20220713, end: 20220802
  2. LENVATINIB [Suspect]
     Active Substance: LENVATINIB
     Indication: Cholangiocarcinoma
  3. PEMBROLIZUMAB [Suspect]
     Active Substance: PEMBROLIZUMAB
     Indication: Bile duct adenocarcinoma
     Route: 041
     Dates: start: 20220713, end: 20220713
  4. PEMBROLIZUMAB [Suspect]
     Active Substance: PEMBROLIZUMAB
     Indication: Cholangiocarcinoma
  5. BELZUTIFAN [Suspect]
     Active Substance: BELZUTIFAN
     Indication: Bile duct adenocarcinoma
     Route: 048
     Dates: start: 20220713, end: 20220802
  6. BELZUTIFAN [Suspect]
     Active Substance: BELZUTIFAN
     Indication: Cholangiocarcinoma
  7. XANAX [Concomitant]
     Active Substance: ALPRAZOLAM
     Dates: start: 20210909
  8. LEVOTHYROXINE SODIUM [Concomitant]
     Active Substance: LEVOTHYROXINE SODIUM
     Dates: start: 20210724
  9. LYRICA [Concomitant]
     Active Substance: PREGABALIN
     Dates: start: 20210830
  10. CYMBALTA [Concomitant]
     Active Substance: DULOXETINE HYDROCHLORIDE
     Dates: start: 20220302
  11. GASTER [Concomitant]
     Active Substance: FAMOTIDINE
     Dates: start: 20210830
  12. METOCLOPRAMIDE HYDROCHLORIDE [Concomitant]
     Active Substance: METOCLOPRAMIDE HYDROCHLORIDE
     Dates: start: 20220705, end: 20220728
  13. TIROPRAMIDE [Concomitant]
     Active Substance: TIROPRAMIDE
     Dates: start: 20220705
  14. NORVASC [Concomitant]
     Active Substance: AMLODIPINE BESYLATE
     Dates: start: 20220720

REACTIONS (3)
  - Tumour lysis syndrome [Not Recovered/Not Resolved]
  - Abdominal pain [Not Recovered/Not Resolved]
  - Hypoxia [Recovered/Resolved]

NARRATIVE: CASE EVENT DATE: 20220728
